FAERS Safety Report 9074818 (Version 1)
Quarter: 2013Q1

REPORT INFORMATION
  Report Type: Spontaneous
  Country: US (occurrence: US)
  Receive Date: 20130129
  Receipt Date: 20130129
  Transmission Date: 20140127
  Serious: No
  Sender: FDA-Public Use
  Company Number: US-ABBOTT-12P-163-0942197-00

PATIENT
  Age: 49 Year
  Sex: Female

DRUGS (13)
  1. HUMIRA 40 MG/0.8 ML PEN [Suspect]
     Indication: RHEUMATOID ARTHRITIS
     Dosage: 1 EOW
     Dates: start: 201109
  2. ABILIFY [Concomitant]
     Indication: PRODUCT USED FOR UNKNOWN INDICATION
  3. TRIMETHOBENZAMIDE [Concomitant]
     Indication: NAUSEA
  4. TRIMETHOBENZAMIDE [Concomitant]
     Indication: HIATUS HERNIA
  5. PROZAC [Concomitant]
     Indication: PRODUCT USED FOR UNKNOWN INDICATION
  6. OMEPRAZOLE [Concomitant]
     Indication: GASTRIC PH DECREASED
  7. UNKNOWN MEDICATION [Concomitant]
     Indication: ALCOHOL ABUSE
  8. TRAZODONE [Concomitant]
     Indication: INSOMNIA
  9. ALPRAZOLAM [Concomitant]
     Indication: PANIC ATTACK
  10. ALPRAZOLAM [Concomitant]
     Indication: ANXIETY
  11. AMBIEN [Concomitant]
     Indication: INSOMNIA
  12. OXYCODONE [Concomitant]
     Indication: TENDONITIS
  13. OXYCODONE [Concomitant]
     Indication: ROTATOR CUFF SYNDROME

REACTIONS (5)
  - Drug administered at inappropriate site [Recovered/Resolved]
  - Chromaturia [Not Recovered/Not Resolved]
  - Wrong technique in drug usage process [Recovered/Resolved]
  - Incorrect dose administered [Recovered/Resolved]
  - Device malfunction [Unknown]
